FAERS Safety Report 16384744 (Version 2)
Quarter: 2020Q2

REPORT INFORMATION
  Report Type: Spontaneous
  Country: FR (occurrence: FR)
  Receive Date: 20190603
  Receipt Date: 20200413
  Transmission Date: 20200713
  Serious: Yes (Hospitalization)
  Sender: FDA-Public Use
  Company Number: FR-MYLANLABS-2019M1051621

PATIENT
  Age: 81 Year
  Sex: Female
  Weight: 93.4 kg

DRUGS (1)
  1. FONDAPARINUX [Suspect]
     Active Substance: FONDAPARINUX
     Indication: PHLEBITIS
     Dosage: 2.5 MILLIGRAM PER MILLILITRE, QD
     Route: 058
     Dates: start: 20190420, end: 20190430

REACTIONS (3)
  - Anaemia [Recovered/Resolved]
  - Off label use [Unknown]
  - Haematoma [Recovered/Resolved]

NARRATIVE: CASE EVENT DATE: 20190420
